APPROVED DRUG PRODUCT: ENOVID
Active Ingredient: MESTRANOL; NORETHYNODREL
Strength: 0.075MG;5MG
Dosage Form/Route: TABLET;ORAL-20
Application: N010976 | Product #004
Applicant: GD SEARLE LLC
Approved: Approved Prior to Jan 1, 1982 | RLD: No | RS: No | Type: DISCN